FAERS Safety Report 8328950-4 (Version None)
Quarter: 2012Q2

REPORT INFORMATION
  Report Type: 
  Country: None (occurrence: None)
  Receive Date: 20120502
  Receipt Date: 20101026
  Transmission Date: 20120825
  Serious: Yes (Other)
  Sender: FDA-Public Use
  Company Number: US-TEVA-2010005353

PATIENT
  Sex: Female

DRUGS (2)
  1. SUBOXONE [Suspect]
  2. NUVIGIL [Suspect]
     Indication: REVERSAL OF SEDATION
     Dosage: 100 MILLIGRAM;
     Route: 048
     Dates: start: 20101007

REACTIONS (3)
  - SUICIDAL IDEATION [None]
  - DEPRESSION [None]
  - PERIPHERAL COLDNESS [None]
